FAERS Safety Report 9267123 (Version 2)
Quarter: 2013Q4

REPORT INFORMATION
  Report Type: Spontaneous
  Country: JP (occurrence: JP)
  Receive Date: 20130502
  Receipt Date: 20131023
  Transmission Date: 20140711
  Serious: Yes (Hospitalization)
  Sender: FDA-Public Use
  Company Number: JP-ROCHE-1218040

PATIENT
  Age: 62 Year
  Sex: Male
  Weight: 56 kg

DRUGS (19)
  1. XELODA [Suspect]
     Indication: COLON CANCER METASTATIC
     Dosage: DOSAGE IS UNCERTAIN
     Route: 048
  2. AVASTIN [Suspect]
     Indication: COLON CANCER METASTATIC
     Dosage: STRENGHT: 100 MG/4 ML
     Route: 041
     Dates: start: 20130319, end: 20130409
  3. ELPLAT [Suspect]
     Indication: COLON CANCER METASTATIC
     Dosage: DOSAGE IS UNCERTAIN
     Route: 041
  4. PYDOXAL [Concomitant]
     Dosage: DOSAGE IS UNCERTAIN
     Route: 048
  5. METHYCOBAL [Concomitant]
     Dosage: DOSAGE IS UNCERTAIN
     Route: 048
  6. NEUROTROPIN (JAPAN) [Concomitant]
     Dosage: DOSAGE IS UNCERTAIN.
     Route: 048
  7. LOXOPROFEN [Concomitant]
     Dosage: DOSAGE IS UNCERTAIN
     Route: 048
  8. REBAMIPIDE [Concomitant]
     Dosage: DOSAGE IS UNCERTAIN
     Route: 048
  9. BIO-THREE [Concomitant]
     Dosage: DOSAGE IS UNCERTAIN
     Route: 048
  10. MAGLAX [Concomitant]
     Dosage: DOSAGE IS UNCERTAIN
     Route: 048
  11. LENDORMIN D [Concomitant]
     Dosage: DOSAGE IS UNCERTAIN
     Route: 048
  12. OXYCONTIN [Concomitant]
     Dosage: DOSAGE IS UNCERTAIN
     Route: 048
  13. SODIUM PICOSULFATE [Concomitant]
     Dosage: DOSAGE IS UNCERTAIN
     Route: 048
  14. PARIET [Concomitant]
     Dosage: DOSAGE IS UNCERTAIN
     Route: 048
  15. OXINORM (JAPAN) [Concomitant]
     Dosage: DOSAGE IS UNCERTAIN
     Route: 048
  16. AMLODIPINE [Concomitant]
     Dosage: DOSAGE IS UNCERTAIN
     Route: 048
  17. ZOMETA [Concomitant]
     Dosage: DOSAGE IS UNCERTAIN
     Route: 042
  18. ONDANSETRON [Concomitant]
     Dosage: DOSAGE IS UNCERTAIN
     Route: 041
  19. DEXART [Concomitant]
     Dosage: DOSAGE IS UNCERTAIN
     Route: 065

REACTIONS (1)
  - Gastrointestinal perforation [Unknown]
